FAERS Safety Report 23455357 (Version 3)
Quarter: 2024Q1

REPORT INFORMATION
  Report Type: Spontaneous
  Country: US (occurrence: US)
  Receive Date: 20240130
  Receipt Date: 20240311
  Transmission Date: 20240409
  Serious: No
  Sender: FDA-Public Use
  Company Number: US-JNJFOC-20240123341

PATIENT
  Age: 59 Year
  Sex: Female

DRUGS (4)
  1. SUDAFED [Suspect]
     Active Substance: PSEUDOEPHEDRINE HYDROCHLORIDE
     Indication: Allergy to chemicals
     Route: 065
     Dates: start: 202401
  2. SUDAFED [Suspect]
     Active Substance: PSEUDOEPHEDRINE HYDROCHLORIDE
     Indication: Sinus headache
  3. ADVIL [Concomitant]
     Active Substance: IBUPROFEN
     Indication: Allergy to chemicals
     Route: 065
     Dates: start: 202401
  4. CORTISONE [Concomitant]
     Active Substance: CORTISONE
     Indication: Erythema
     Route: 061
     Dates: start: 202401

REACTIONS (2)
  - Product use in unapproved indication [Unknown]
  - Therapeutic response unexpected [Unknown]

NARRATIVE: CASE EVENT DATE: 20240101
